FAERS Safety Report 24960648 (Version 1)
Quarter: 2025Q1

REPORT INFORMATION
  Report Type: Spontaneous
  Country: PL (occurrence: PL)
  Receive Date: 20250212
  Receipt Date: 20250212
  Transmission Date: 20250409
  Serious: Yes (Other)
  Sender: REGENERON
  Company Number: PL-BAYER-2025A018693

PATIENT
  Age: 75 Year
  Sex: Female

DRUGS (1)
  1. EYLEA HD [Suspect]
     Active Substance: AFLIBERCEPT
     Indication: Age-related macular degeneration
     Dates: start: 20250128

REACTIONS (5)
  - Blindness [Unknown]
  - Vitritis [Unknown]
  - Visual acuity reduced [Recovering/Resolving]
  - Vitreous disorder [Unknown]
  - Conjunctival pallor [Unknown]

NARRATIVE: CASE EVENT DATE: 20250129
